FAERS Safety Report 7834480-6 (Version None)
Quarter: 2011Q4

REPORT INFORMATION
  Report Type: 
  Country: None (occurrence: None)
  Receive Date: 20111024
  Receipt Date: 20111017
  Transmission Date: 20120403
  Serious: Yes (Hospitalization)
  Sender: FDA-Public Use
  Company Number: US-SANOFI-AVENTIS-2011SA069132

PATIENT
  Age: 59 Year
  Sex: Male

DRUGS (9)
  1. PLAVIX [Suspect]
     Route: 065
  2. IMDUR [Concomitant]
  3. PRAVASTATIN [Concomitant]
  4. LISINOPRIL [Concomitant]
  5. COREG [Concomitant]
  6. PREDNISONE [Concomitant]
     Indication: PERICARDITIS
  7. CARDIZEM [Concomitant]
  8. ASPIRIN [Concomitant]
  9. COUMADIN [Concomitant]

REACTIONS (4)
  - MYOCARDIAL INFARCTION [None]
  - INTRACARDIAC THROMBUS [None]
  - CARDIAC FAILURE CONGESTIVE [None]
  - ATRIAL FIBRILLATION [None]
